FAERS Safety Report 5398826-3 (Version None)
Quarter: 2007Q3

REPORT INFORMATION
  Report Type: 
  Country: None (occurrence: None)
  Receive Date: 20070725
  Receipt Date: 20070725
  Transmission Date: 20080115
  Serious: Yes (Life-Threatening, Hospitalization, Disabling)
  Sender: FDA-Public Use
  Company Number: None

PATIENT
  Age: 95 Year
  Sex: Female
  Weight: 113.3993 kg

DRUGS (1)
  1. AVANDIA [Suspect]
     Indication: DIABETES MELLITUS
     Dosage: 4 M    2 X A.M.   1 IN EVENING
     Dates: start: 19950101, end: 20070101

REACTIONS (2)
  - HEART DISEASE CONGENITAL [None]
  - WEIGHT INCREASED [None]
